FAERS Safety Report 12527298 (Version 1)
Quarter: 2016Q3

REPORT INFORMATION
  Report Type: Spontaneous
  Country: NL (occurrence: NL)
  Receive Date: 20160705
  Receipt Date: 20160705
  Transmission Date: 20161109
  Serious: Yes (Other)
  Sender: FDA-Public Use
  Company Number: NL-ASTRAZENECA-2016SE72254

PATIENT
  Sex: Female

DRUGS (3)
  1. ARIMIDEX [Suspect]
     Active Substance: ANASTROZOLE
     Indication: BREAST CANCER
     Dosage: UNKNOWN
     Route: 048
  2. EXEMESTANE. [Concomitant]
     Active Substance: EXEMESTANE
  3. ARIMIDEX [Suspect]
     Active Substance: ANASTROZOLE
     Indication: BREAST CANCER METASTATIC
     Dosage: UNKNOWN
     Route: 048

REACTIONS (2)
  - Breast cancer metastatic [None]
  - Malignant neoplasm progression [Unknown]
